FAERS Safety Report 7515324-9 (Version None)
Quarter: 2011Q2

REPORT INFORMATION
  Report Type: 
  Country: None (occurrence: None)
  Receive Date: 20110601
  Receipt Date: 20100623
  Transmission Date: 20111010
  Serious: No
  Sender: FDA-Public Use
  Company Number: US-PFIZER INC-2010078519

PATIENT
  Sex: Male

DRUGS (2)
  1. CHANTIX [Suspect]
     Dosage: UNK
  2. PROZAC [Concomitant]
     Dosage: UNK

REACTIONS (1)
  - SEXUAL DYSFUNCTION [None]
